FAERS Safety Report 14004914 (Version 1)
Quarter: 2017Q3

REPORT INFORMATION
  Report Type: Spontaneous
  Country: US (occurrence: US)
  Receive Date: 20170922
  Receipt Date: 20170922
  Transmission Date: 20171128
  Serious: No
  Sender: FDA-Public Use
  Company Number: US-PFIZER INC-2017406883

PATIENT
  Sex: Female
  Weight: 54 kg

DRUGS (2)
  1. LATANOPROST. [Suspect]
     Active Substance: LATANOPROST
     Indication: GLAUCOMA
     Dosage: 1 GTT, DAILY (1  IN EACH EYE AT NIGHT)
     Dates: start: 2013, end: 2014
  2. LATANOPROST. [Suspect]
     Active Substance: LATANOPROST
     Dosage: TWO AND THEN THREE TIMES A DAY

REACTIONS (2)
  - Drug ineffective [Unknown]
  - Intentional product use issue [Unknown]
